FAERS Safety Report 8022749 (Version 5)
Quarter: 2012Q4

REPORT INFORMATION
  Report Type: 
  Country: US (occurrence: US)
  Receive Date: 20110706
  Receipt Date: 20120928
  Transmission Date: 20130627
  Serious: Yes (Hospitalization, Other)
  Sender: FDA-Public Use
  Company Number: US-US-EMD SERONO, INC.-7067289

PATIENT
  Age: 53 Year
  Sex: Male
  Weight: 90 kg

DRUGS (8)
  1. EGRIFTA [Suspect]
     Indication: LIPODYSTROPHY ACQUIRED
     Route: 058
     Dates: start: 20110223, end: 20110607
  2. EGRIFTA [Suspect]
     Route: 058
     Dates: start: 20120411, end: 201205
  3. TRICOR [Concomitant]
     Indication: PRODUCT USED FOR UNKNOWN INDICATION
     Dates: start: 2000, end: 2011
  4. REYATAZ [Concomitant]
     Indication: LENTIVIRUS TEST POSITIVE
     Dates: start: 20060512
  5. KALETRA [Concomitant]
     Indication: LENTIVIRUS TEST POSITIVE
     Route: 048
     Dates: start: 20060512
  6. TESTOSTERONE [Concomitant]
     Indication: HYPOGONADISM
     Route: 030
     Dates: start: 20100804
  7. PROVIGIL [Concomitant]
     Indication: FATIGUE
     Route: 048
     Dates: start: 20110531
  8. RANITIDINE [Concomitant]
     Indication: GASTROOESOPHAGEAL REFLUX DISEASE
     Dates: start: 2006

REACTIONS (8)
  - Pancreatic carcinoma [Not Recovered/Not Resolved]
  - IgA nephropathy [Recovered/Resolved]
  - Blood creatine phosphokinase increased [Recovered/Resolved]
  - Abasia [Recovered/Resolved]
  - Gout [Unknown]
  - Oedema [Unknown]
  - Joint swelling [Unknown]
  - Pain [Recovered/Resolved]
